FAERS Safety Report 18435981 (Version 1)
Quarter: 2020Q4

REPORT INFORMATION
  Report Type: Spontaneous
  Country: US (occurrence: US)
  Receive Date: 20201028
  Receipt Date: 20201028
  Transmission Date: 20210114
  Serious: No
  Sender: FDA-Public Use
  Company Number: None

PATIENT
  Age: 60 Year
  Sex: Female

DRUGS (1)
  1. RITUXAN [Suspect]
     Active Substance: RITUXIMAB
     Indication: LYMPHOMA
     Dosage: ?          OTHER FREQUENCY:EVERY 2 WEEKS 2X/Y;?
     Route: 041
     Dates: start: 20181228

REACTIONS (6)
  - Pruritus [None]
  - Infusion related reaction [None]
  - Rash [None]
  - Throat irritation [None]
  - Nausea [None]
  - Cough [None]

NARRATIVE: CASE EVENT DATE: 20200930
